FAERS Safety Report 7306256-X (Version None)
Quarter: 2011Q1

REPORT INFORMATION
  Report Type: 
  Country: None (occurrence: None)
  Receive Date: 20110222
  Receipt Date: 20110214
  Transmission Date: 20110831
  Serious: Yes (Hospitalization)
  Sender: FDA-Public Use
  Company Number: JP-SHIRE-SPV1-2011-00071

PATIENT
  Sex: Female
  Weight: 51.1 kg

DRUGS (6)
  1. LOXOPROFEN SODIUM [Concomitant]
     Indication: HEADACHE
     Dosage: THREE OR TWO TIMES PER DAY
     Dates: start: 20110107, end: 20110119
  2. ANAGRELIDE HCL [Suspect]
     Indication: ESSENTIAL THROMBOCYTHAEMIA
     Dosage: 1.5 MG DAILY (DIVIDED INTO TWO DOSES)
     Route: 048
     Dates: start: 20110112, end: 20110117
  3. HYDROXYCARBAMIDE [Concomitant]
     Indication: PRODUCT USED FOR UNKNOWN INDICATION
     Dosage: 1500 MG, 1X/DAY:QD
     Route: 048
     Dates: start: 20100930, end: 20110103
  4. HYDROXYCARBAMIDE [Concomitant]
     Dosage: UNK UNK, UNKNOWN
     Route: 048
     Dates: start: 19970601, end: 20100930
  5. PRIMPERAN TAB [Concomitant]
     Indication: NAUSEA
     Dosage: THREE OR TWO TIMES DAILY
     Dates: start: 20110107, end: 20110119
  6. ANAGRELIDE HCL [Suspect]
     Dosage: 1 MG, 1X/DAY:QD
     Route: 048
     Dates: start: 20110105, end: 20110111

REACTIONS (2)
  - CEREBRAL INFARCTION [None]
  - PNEUMONIA [None]
